FAERS Safety Report 5006282-X (Version None)
Quarter: 2006Q2

REPORT INFORMATION
  Report Type: 
  Country: None (occurrence: None)
  Receive Date: 20060519
  Receipt Date: 20060508
  Transmission Date: 20061013
  Serious: Yes (Other)
  Sender: FDA-Public Use
  Company Number: PHFR2006GB01637

PATIENT
  Age: 43 Year
  Weight: 83 kg

DRUGS (1)
  1. TERBINAFINE HCL [Suspect]
     Indication: ONYCHOMYCOSIS
     Dosage: 25 MG, QD
     Route: 048
     Dates: start: 20051130, end: 20060110

REACTIONS (3)
  - DEPRESSED MOOD [None]
  - HEADACHE [None]
  - NAUSEA [None]
